FAERS Safety Report 6233915-2 (Version None)
Quarter: 2009Q2

REPORT INFORMATION
  Report Type: 
  Country: None (occurrence: None)
  Receive Date: 20090618
  Receipt Date: 20090605
  Transmission Date: 20091009
  Serious: Yes (Hospitalization)
  Sender: FDA-Public Use
  Company Number: PHEH2009US05810

PATIENT
  Sex: Female

DRUGS (1)
  1. RECLAST [Suspect]
     Dosage: 5 MG, ONCE/SINGLE
     Route: 042

REACTIONS (2)
  - BLOOD CALCIUM ABNORMAL [None]
  - RENAL FAILURE [None]
